FAERS Safety Report 5194290-8 (Version None)
Quarter: 2006Q4

REPORT INFORMATION
  Report Type: 
  Country: None (occurrence: None)
  Receive Date: 20061228
  Receipt Date: 20060725
  Transmission Date: 20070319
  Serious: Yes (Hospitalization)
  Sender: FDA-Public Use
  Company Number: GB-PFIZER INC-2006091599

PATIENT
  Sex: Female

DRUGS (1)
  1. ESTRADIOL INJ [Suspect]
     Indication: HORMONE REPLACEMENT THERAPY

REACTIONS (2)
  - BUNION [None]
  - HOT FLUSH [None]
